FAERS Safety Report 23054334 (Version 1)
Quarter: 2023Q4

REPORT INFORMATION
  Report Type: Spontaneous
  Country: JP (occurrence: JP)
  Receive Date: 20231011
  Receipt Date: 20231011
  Transmission Date: 20240110
  Serious: Yes (Hospitalization, Other)
  Sender: FDA-Public Use
  Company Number: JP-BRISTOL-MYERS SQUIBB COMPANY-2023-142173

PATIENT
  Age: 81 Year
  Sex: Male

DRUGS (2)
  1. ELIQUIS [Suspect]
     Active Substance: APIXABAN
     Indication: Product used for unknown indication
     Dosage: DOSE : 2 TABLETS;     FREQ : DIVIDED IN 2 (DOSES)
     Route: 048
  2. ELIQUIS [Suspect]
     Active Substance: APIXABAN
     Dosage: DOSE : 2 TABLETS;     FREQ : DIVIDED IN 2 (DOSES)
     Route: 048

REACTIONS (3)
  - Cardiac failure congestive [Unknown]
  - Renal impairment [Unknown]
  - Dysphagia [Unknown]
